FAERS Safety Report 9263301 (Version 1)
Quarter: 2013Q2

REPORT INFORMATION
  Report Type: Spontaneous
  Country: US (occurrence: None)
  Receive Date: 20130429
  Receipt Date: 20130429
  Transmission Date: 20140414
  Serious: Yes (Life-Threatening, Hospitalization)
  Sender: FDA-Public Use
  Company Number: None

PATIENT
  Age: 73 Year
  Sex: Female
  Weight: 73.48 kg

DRUGS (1)
  1. LISINOPRIL [Suspect]
     Dosage: 1 ONCE A DAY 1 24 HRS PO
     Route: 048
     Dates: start: 200602, end: 201304

REACTIONS (4)
  - Swollen tongue [None]
  - Dyspnoea [None]
  - Flushing [None]
  - Blood pressure abnormal [None]
